FAERS Safety Report 16211560 (Version 1)
Quarter: 2019Q2

REPORT INFORMATION
  Report Type: Spontaneous
  Country: US (occurrence: US)
  Receive Date: 20190417
  Receipt Date: 20190417
  Transmission Date: 20190711
  Serious: No
  Sender: FDA-Public Use
  Company Number: None

PATIENT
  Age: 29 Year
  Sex: Female
  Weight: 63.9 kg

DRUGS (7)
  1. ATENOLOL. [Concomitant]
     Active Substance: ATENOLOL
  2. PULSATILLA [Concomitant]
  3. ARNICA MONTANA. [Concomitant]
     Active Substance: HOMEOPATHICS
  4. DEXTROAMPHET SACCHARAT, AMPHET ASPARTATE, DEXTROAMPHET SULFATE AND AMPHET SULFAT [Suspect]
     Active Substance: AMPHETAMINE ASPARTATE\AMPHETAMINE SULFATE\DEXTROAMPHETAMINE SACCHARATE\DEXTROAMPHETAMINE SULFATE
     Indication: ATTENTION DEFICIT/HYPERACTIVITY DISORDER
     Dosage: ?          QUANTITY:1 TABLET(S);OTHER FREQUENCY:2X/DAY + AS NEEDED;?
     Route: 048
     Dates: start: 20190404, end: 20190417
  5. AMLODIPINE BESYLATE. [Concomitant]
     Active Substance: AMLODIPINE BESYLATE
  6. IBUPROFEN. [Concomitant]
     Active Substance: IBUPROFEN
  7. CLONAZEPAM. [Concomitant]
     Active Substance: CLONAZEPAM

REACTIONS (7)
  - Headache [None]
  - Product substitution issue [None]
  - Drug ineffective [None]
  - Depressed mood [None]
  - Anxiety [None]
  - Sluggishness [None]
  - Palpitations [None]

NARRATIVE: CASE EVENT DATE: 20190404
